FAERS Safety Report 6086166-9 (Version None)
Quarter: 2009Q1

REPORT INFORMATION
  Report Type: 
  Country: None (occurrence: None)
  Receive Date: 20090220
  Receipt Date: 20090206
  Transmission Date: 20090719
  Serious: Yes (Hospitalization)
  Sender: FDA-Public Use
  Company Number: FR-GENENTECH-271948

PATIENT
  Sex: Male

DRUGS (9)
  1. RITUXIMAB [Suspect]
     Indication: NON-HODGKIN'S LYMPHOMA
     Dosage: 750 MG, QD
     Route: 042
     Dates: start: 20080901
  2. SOLU-MEDROL [Suspect]
     Indication: NON-HODGKIN'S LYMPHOMA
     Dosage: 50 MG, QD
     Route: 042
     Dates: start: 20080902
  3. VINCRISTINE [Suspect]
     Indication: NON-HODGKIN'S LYMPHOMA
     Dosage: 2 MG, QD
     Route: 042
     Dates: start: 20080902
  4. METHOTREXATE [Suspect]
     Indication: NON-HODGKIN'S LYMPHOMA
     Dosage: 3000 MG, QD
     Route: 042
     Dates: start: 20080904
  5. DEPOCYT [Suspect]
     Indication: NON-HODGKIN'S LYMPHOMA
     Dosage: 50 MG, QD
     Route: 042
     Dates: start: 20080905
  6. CYCLOPHOSPHAMIDE [Suspect]
     Indication: NON-HODGKIN'S LYMPHOMA
     Dosage: 1000 MG, QD
     Route: 042
     Dates: start: 20080905
  7. MEDROL [Suspect]
     Indication: NON-HODGKIN'S LYMPHOMA
     Dosage: 80 MG, QD
     Route: 042
     Dates: start: 20080908
  8. ADRIBLASTINE [Suspect]
     Indication: NON-HODGKIN'S LYMPHOMA
     Dosage: 60 MG, QD
     Route: 042
     Dates: start: 20080905
  9. FOLIC ACID [Concomitant]
     Indication: DRUG USE FOR UNKNOWN INDICATION
     Dosage: UNK
     Dates: start: 20080803, end: 20081018

REACTIONS (1)
  - FEBRILE BONE MARROW APLASIA [None]
